FAERS Safety Report 4886904-4 (Version None)
Quarter: 2006Q1

REPORT INFORMATION
  Report Type: 
  Country: None (occurrence: None)
  Receive Date: 20060119
  Receipt Date: 20060117
  Transmission Date: 20060701
  Serious: Yes (Death)
  Sender: FDA-Public Use
  Company Number: TCI2006A00127

PATIENT
  Age: 42 Year
  Sex: Female

DRUGS (2)
  1. LEUPROLIDE ACETATE [Suspect]
     Indication: UTERINE LEIOMYOMA
     Dosage: 3.75 MG (3.75 MG, 1 IN 28 D) SUBCUTANEOUS
     Route: 058
     Dates: start: 20051128, end: 20051226
  2. FERROMIA (FERROUS CITRATE) (PREPARATION FOR ORAL USE (NOS)) [Concomitant]

REACTIONS (4)
  - ACUTE MYOCARDIAL INFARCTION [None]
  - FALL [None]
  - GENITAL HAEMORRHAGE [None]
  - INJECTION SITE INDURATION [None]
